FAERS Safety Report 4452242-7 (Version None)
Quarter: 2004Q3

REPORT INFORMATION
  Report Type: 
  Country: None (occurrence: None)
  Receive Date: 20040915
  Receipt Date: 20040831
  Transmission Date: 20050211
  Serious: Yes (Other)
  Sender: FDA-Public Use
  Company Number: DE-2004-029019

PATIENT
  Age: 43 Year
  Sex: Female
  Weight: 70 kg

DRUGS (1)
  1. MIRENA [Suspect]
     Dosage: 20 UG/DAY, CONT, INTRA-UTERINE
     Route: 015
     Dates: start: 20040223

REACTIONS (11)
  - ABDOMINAL PAIN [None]
  - AMENORRHOEA [None]
  - BLOOD CREATININE INCREASED [None]
  - BLOOD PRESSURE DECREASED [None]
  - BLOOD PRESSURE INCREASED [None]
  - CYSTITIS [None]
  - DISEASE RECURRENCE [None]
  - DYSGEUSIA [None]
  - EYE SWELLING [None]
  - METRORRHAGIA [None]
  - OEDEMA PERIPHERAL [None]
